FAERS Safety Report 7729556-8 (Version None)
Quarter: 2011Q3

REPORT INFORMATION
  Report Type: 
  Country: None (occurrence: None)
  Receive Date: 20110906
  Receipt Date: 20110825
  Transmission Date: 20111222
  Serious: Yes (Congenital Anomaly)
  Sender: FDA-Public Use
  Company Number: CH-JNJFOC-20110810901

PATIENT
  Sex: Male
  Weight: 3.6 kg

DRUGS (2)
  1. TOPAMAX [Suspect]
     Indication: MATERNAL EXPOSURE DURING PREGNANCY
     Route: 064
     Dates: start: 20110404, end: 20110514
  2. TOPAMAX [Suspect]
     Route: 064
     Dates: start: 20100803, end: 20110403

REACTIONS (2)
  - HAEMANGIOMA CONGENITAL [None]
  - TALIPES [None]
